FAERS Safety Report 6508122-6 (Version None)
Quarter: 2009Q4

REPORT INFORMATION
  Report Type: 
  Country: None (occurrence: None)
  Receive Date: 20091221
  Receipt Date: 20091210
  Transmission Date: 20100525
  Serious: Yes (Hospitalization, Other)
  Sender: FDA-Public Use
  Company Number: US-PFIZER INC-2009309277

PATIENT
  Sex: Female
  Weight: 82 kg

DRUGS (8)
  1. TIKOSYN [Suspect]
     Indication: ATRIAL FIBRILLATION
     Dosage: UNK
     Route: 048
     Dates: start: 20081007
  2. DILTIAZEM [Concomitant]
     Dosage: FREQUENCY: 2X/DAY,
     Route: 048
  3. ALISKIREN [Concomitant]
     Dosage: 300 MG, 1X/DAY
     Route: 048
  4. LISINOPRIL [Concomitant]
     Dosage: 40 MG, 1X/DAY
     Route: 048
  5. WARFARIN SODIUM [Concomitant]
     Dosage: UNK
     Route: 048
  6. FUROSEMIDE [Concomitant]
     Dosage: 40 MG, 1X/DAY
     Route: 048
  7. CALCIUM WITH VITAMIN D [Concomitant]
     Dosage: UNK
  8. LORAZEPAM [Concomitant]
     Indication: SLEEP DISORDER
     Dosage: FREQUENCY: AS NEEDED,
     Route: 048

REACTIONS (3)
  - GALLBLADDER DISORDER [None]
  - PAIN IN EXTREMITY [None]
  - PERIPHERAL ARTERIAL OCCLUSIVE DISEASE [None]
